FAERS Safety Report 16919404 (Version 2)
Quarter: 2019Q4

REPORT INFORMATION
  Report Type: Report from Study
  Country: US (occurrence: US)
  Receive Date: 20191015
  Receipt Date: 20191202
  Transmission Date: 20200122
  Serious: Yes (Other)
  Sender: FDA-Public Use
  Company Number: US-ROCHE-2434138

PATIENT
  Age: 49 Year
  Sex: Female
  Weight: 110.32 kg

DRUGS (27)
  1. ADDERALL [Concomitant]
     Active Substance: AMPHETAMINE ASPARTATE\AMPHETAMINE SULFATE\DEXTROAMPHETAMINE SACCHARATE\DEXTROAMPHETAMINE SULFATE
     Route: 048
  2. CLONIDINE HCL [Concomitant]
     Active Substance: CLONIDINE HYDROCHLORIDE
     Route: 048
  3. MUPRICON [Concomitant]
     Route: 065
  4. QUETIAPINE. [Concomitant]
     Active Substance: QUETIAPINE
     Route: 048
  5. FOLIC ACID. [Concomitant]
     Active Substance: FOLIC ACID
     Route: 048
  6. LYRICA [Concomitant]
     Active Substance: PREGABALIN
     Route: 048
  7. CARBAMAZEPINE. [Concomitant]
     Active Substance: CARBAMAZEPINE
     Route: 048
  8. CARBAMAZEPIN [Concomitant]
     Active Substance: CARBAMAZEPINE
     Route: 048
  9. CLINDAMYCIN. [Concomitant]
     Active Substance: CLINDAMYCIN
     Route: 048
  10. OCREVUS [Suspect]
     Active Substance: OCRELIZUMAB
     Indication: RELAPSING-REMITTING MULTIPLE SCLEROSIS
     Dosage: NEXT DATE OF ADMINISTARTION: 23/AUG/2019
     Route: 042
     Dates: start: 20190813
  11. AMPYRA [Concomitant]
     Active Substance: DALFAMPRIDINE
     Route: 048
  12. SUMATRIPTAN. [Concomitant]
     Active Substance: SUMATRIPTAN
  13. OCREVUS [Suspect]
     Active Substance: OCRELIZUMAB
     Dosage: 30 MG/ML INFUSE EVERY 6 MONTHS
     Route: 042
     Dates: start: 201906
  14. MELATONIN [Concomitant]
     Active Substance: MELATONIN
  15. METHOCARBAMOL. [Concomitant]
     Active Substance: METHOCARBAMOL
     Route: 048
  16. NARCAN [Concomitant]
     Active Substance: NALOXONE HYDROCHLORIDE
     Route: 065
  17. OXYCODONE [Concomitant]
     Active Substance: OXYCODONE
     Route: 048
  18. AMITRIPTYLINE [Concomitant]
     Active Substance: AMITRIPTYLINE
     Indication: HEADACHE
     Dosage: AT BEDTIME
     Route: 048
  19. BUTALBITAL, ACETAMINOPHEN, AND CAFFEINE [Concomitant]
     Active Substance: ACETAMINOPHEN\BUTALBITAL\CAFFEINE
     Dosage: MAX 3 DAYS/WK
     Route: 048
  20. PREGABALIN. [Concomitant]
     Active Substance: PREGABALIN
     Indication: NEURALGIA
     Route: 048
  21. DICLOFENAC [Concomitant]
     Active Substance: DICLOFENAC
     Route: 061
  22. EMBEDA [Concomitant]
     Active Substance: MORPHINE SULFATE\NALTREXONE HYDROCHLORIDE
     Route: 048
  23. PROMETHAZINE [Concomitant]
     Active Substance: PROMETHAZINE HYDROCHLORIDE
     Route: 048
  24. RELPAX [Concomitant]
     Active Substance: ELETRIPTAN HYDROBROMIDE
     Dosage: TAKE 1 WITH ONSET OF MIGRAINE REPEAT IN 2 HRS IF NEEDED. MAX 2/DAY
     Route: 048
  25. AJOVY [Concomitant]
     Active Substance: FREMANEZUMAB-VFRM
     Route: 058
  26. FUROSEMIDE. [Concomitant]
     Active Substance: FUROSEMIDE
     Route: 050
  27. DALFAMPRIDINE. [Concomitant]
     Active Substance: DALFAMPRIDINE
     Route: 048

REACTIONS (3)
  - Upper respiratory tract infection [Recovered/Resolved]
  - Headache [Unknown]
  - Bronchitis [Recovered/Resolved]

NARRATIVE: CASE EVENT DATE: 20190813
